APPROVED DRUG PRODUCT: ISOTRETINOIN
Active Ingredient: ISOTRETINOIN
Strength: 35MG
Dosage Form/Route: CAPSULE;ORAL
Application: A216633 | Product #005 | TE Code: AB2
Applicant: ZYDUS PHARMACEUTICALS USA INC
Approved: May 22, 2025 | RLD: No | RS: No | Type: RX